FAERS Safety Report 21983211 (Version 3)
Quarter: 2023Q2

REPORT INFORMATION
  Report Type: Spontaneous
  Country: JP (occurrence: JP)
  Receive Date: 20230213
  Receipt Date: 20230606
  Transmission Date: 20230721
  Serious: Yes (Life-Threatening, Hospitalization, Disabling, Other)
  Sender: FDA-Public Use
  Company Number: JP-BEH-2023155075

PATIENT
  Age: 85 Year
  Sex: Male
  Weight: 60 kg

DRUGS (11)
  1. HIZENTRA [Suspect]
     Active Substance: HUMAN IMMUNOGLOBULIN G
     Indication: Chronic inflammatory demyelinating polyradiculoneuropathy
     Dosage: 8 GRAM, QW
     Route: 058
     Dates: start: 20221031, end: 20221107
  2. HIZENTRA [Suspect]
     Active Substance: HUMAN IMMUNOGLOBULIN G
     Dosage: 16 GRAM, QW
     Route: 058
     Dates: start: 20221114, end: 20221227
  3. HUMAN IMMUNOGLOBULIN G [Suspect]
     Active Substance: HUMAN IMMUNOGLOBULIN G
     Dosage: UNK
     Route: 042
  4. VENOGLOBULIN IH [Suspect]
     Active Substance: HUMAN IMMUNOGLOBULIN G
     Indication: Chronic inflammatory demyelinating polyradiculoneuropathy
     Dosage: 20 GRAM (0.4 G/KG)
     Route: 042
     Dates: start: 20221205, end: 20221208
  5. KENKETU GLOVENIN-I [Suspect]
     Active Substance: HUMAN IMMUNOGLOBULIN G
     Indication: Chronic inflammatory demyelinating polyradiculoneuropathy
     Dosage: 20 GRAM (0.4 GRAM/KG)
     Route: 042
     Dates: start: 20220908, end: 20220908
  6. KENKETU GLOVENIN-I [Suspect]
     Active Substance: HUMAN IMMUNOGLOBULIN G
     Dosage: UNK
     Route: 042
     Dates: start: 20221205
  7. PREDNISOLONE SODIUM SUCCINATE [Concomitant]
     Active Substance: PREDNISOLONE SODIUM SUCCINATE
     Indication: Chronic inflammatory demyelinating polyradiculoneuropathy
     Dosage: UNK
     Dates: start: 20221031, end: 20221107
  8. PREDNISOLONE SODIUM SUCCINATE [Concomitant]
     Active Substance: PREDNISOLONE SODIUM SUCCINATE
     Indication: Premedication
     Dosage: 20 MILLIGRAM, QW, ROUTE OF ADMINISTRATION: CENTRAL VEIN
     Route: 042
     Dates: start: 20221107, end: 20221227
  9. AMINO ACIDS\DEXTROSE\ELECTROLYTES NOS\MINERALS\VITAMINS [Concomitant]
     Active Substance: AMINO ACIDS\DEXTROSE\ELECTROLYTES NOS\MINERALS\VITAMINS
     Indication: Nutritional supplementation
     Dosage: 2000 MILLILITER, QD, ROUTE OF ADMINISTRATION: CENTRAL VEIN
     Route: 042
     Dates: start: 20221012, end: 20221229
  10. HUMULIN R [Concomitant]
     Active Substance: INSULIN HUMAN
     Indication: Diabetes mellitus
     Dosage: 24 INTERNATIONAL UNIT, QD, ROUTE OF ADMINISTRATION: CENTRAL VEIN
     Route: 042
     Dates: start: 20221012, end: 20221229
  11. POLARAMINE [Concomitant]
     Active Substance: DEXCHLORPHENIRAMINE MALEATE
     Indication: Premedication
     Dosage: 5 MILLIGRAM, QW, ROUTE OF ADMINISTRATION: CENTRAL VEIN
     Route: 042
     Dates: start: 20221107, end: 20221227

REACTIONS (15)
  - Vasoconstriction [Recovered/Resolved]
  - Thrombosis mesenteric vessel [Recovered/Resolved]
  - Lymphoma [Unknown]
  - Secondary immunodeficiency [Unknown]
  - Terminal ileitis [Recovered/Resolved]
  - Nausea [Recovered/Resolved]
  - Vomiting [Recovered/Resolved]
  - Gastrointestinal oedema [Recovered/Resolved]
  - Lymphoma [Not Recovered/Not Resolved]
  - Vascular device infection [Recovered/Resolved]
  - Sepsis [Recovered/Resolved]
  - Pyrexia [Recovered/Resolved]
  - Blood pressure decreased [Recovered/Resolved]
  - Systemic candida [Recovered/Resolved]
  - General physical health deterioration [Not Recovered/Not Resolved]

NARRATIVE: CASE EVENT DATE: 20221221
